FAERS Safety Report 7591991-9 (Version None)
Quarter: 2011Q2

REPORT INFORMATION
  Report Type: 
  Country: None (occurrence: None)
  Receive Date: 20110606
  Receipt Date: 20100925
  Transmission Date: 20111010
  Serious: Yes (Other)
  Sender: FDA-Public Use
  Company Number: US-SEPTODONT-201000185'

PATIENT
  Age: 68 Year
  Sex: Male
  Weight: 95.2 kg

DRUGS (1)
  1. SEPTOCAINE [Suspect]
     Indication: LOCAL ANAESTHESIA
     Dosage: 3 INJECTIONS BUCCAL
     Route: 002
     Dates: start: 20100226, end: 20100226

REACTIONS (1)
  - PARAESTHESIA [None]
